FAERS Safety Report 14713952 (Version 1)
Quarter: 2018Q1

REPORT INFORMATION
  Report Type: Spontaneous
  Country: US (occurrence: US)
  Receive Date: 20180330
  Receipt Date: 20180330
  Transmission Date: 20180509
  Serious: Yes (Hospitalization)
  Sender: FDA-Public Use
  Company Number: None

PATIENT
  Age: 60 Year
  Sex: Female

DRUGS (14)
  1. STOOL SOFTNER [Concomitant]
  2. CYCLOBENAZAPR [Concomitant]
  3. FOLIC ACID. [Concomitant]
     Active Substance: FOLIC ACID
  4. METHOTREXATE. [Concomitant]
     Active Substance: METHOTREXATE
  5. HUMIRA [Concomitant]
     Active Substance: ADALIMUMAB
  6. HUMIRA [Suspect]
     Active Substance: ADALIMUMAB
     Indication: RHEUMATOID ARTHRITIS
     Route: 058
     Dates: start: 20080822
  7. OXYCODONE [Concomitant]
     Active Substance: OXYCODONE
  8. EFFEXOR XR [Concomitant]
     Active Substance: VENLAFAXINE HYDROCHLORIDE
  9. TYLENOL/COD [Concomitant]
  10. MULTIVITAMIN [Concomitant]
     Active Substance: VITAMINS
  11. TYLENOL [Concomitant]
     Active Substance: ACETAMINOPHEN
  12. MOBIC [Concomitant]
     Active Substance: MELOXICAM
  13. CEFDINIR. [Concomitant]
     Active Substance: CEFDINIR
  14. SULINDAC. [Concomitant]
     Active Substance: SULINDAC

REACTIONS (4)
  - Pain [None]
  - Spinal operation [None]
  - Therapy cessation [None]
  - Condition aggravated [None]

NARRATIVE: CASE EVENT DATE: 201802
